FAERS Safety Report 8030682-7 (Version None)
Quarter: 2012Q1

REPORT INFORMATION
  Report Type: 
  Country: None (occurrence: None)
  Receive Date: 20120109
  Receipt Date: 20111228
  Transmission Date: 20120608
  Serious: Yes (Life-Threatening)
  Sender: FDA-Public Use
  Company Number: US-ROCHE-1027695

PATIENT
  Age: 40 Year
  Sex: Female

DRUGS (3)
  1. ALTEPLASE [Suspect]
     Indication: PULMONARY EMBOLISM
     Dosage: FORMULATION: POWER-PULSE SPRAY
  2. LOCAL ANESTHETIC (UNK INGREDIENTS) [Concomitant]
     Indication: ANAESTHESIA
  3. ANTICOAGULANT [Concomitant]
     Indication: ANTICOAGULANT THERAPY

REACTIONS (1)
  - CARDIAC ARREST [None]
